FAERS Safety Report 4389821-0 (Version None)
Quarter: 2004Q2

REPORT INFORMATION
  Report Type: 
  Country: None (occurrence: None)
  Receive Date: 20040630
  Receipt Date: 20040617
  Transmission Date: 20050107
  Serious: Yes (Hospitalization, Other)
  Sender: FDA-Public Use
  Company Number: 200405494

PATIENT
  Age: 35 Year
  Sex: Male

DRUGS (1)
  1. BOTOX PURIFIED NEUROTOXIN COMPLEX [Suspect]
     Indication: MUSCLE SPASTICITY

REACTIONS (8)
  - BLOOD PRESSURE INCREASED [None]
  - CARDIAC DISORDER [None]
  - COGNITIVE DISORDER [None]
  - DIFFICULTY IN WALKING [None]
  - INJECTION SITE HAEMORRHAGE [None]
  - INJECTION SITE PAIN [None]
  - PAIN [None]
  - SHOCK [None]
